FAERS Safety Report 8894916 (Version 1)
Quarter: 2012Q4

REPORT INFORMATION
  Report Type: 
  Country: JP (occurrence: JP)
  Receive Date: 20121108
  Receipt Date: 20121108
  Transmission Date: 20130627
  Serious: Yes (Other)
  Sender: FDA-Public Use
  Company Number: PHHY2012JP074586

PATIENT
  Age: 71 Year
  Sex: Male

DRUGS (1)
  1. CO-DIOVAN [Suspect]
     Indication: HYPERTENSION
     Dosage: 1 DF, QD
     Route: 048
     Dates: start: 20120822, end: 20120822

REACTIONS (6)
  - Blood pressure increased [Unknown]
  - Muscle spasms [Recovered/Resolved]
  - Hand deformity [Recovered/Resolved]
  - Aphagia [Unknown]
  - Blood pressure decreased [Recovered/Resolved]
  - Dizziness postural [Recovered/Resolved]
